FAERS Safety Report 9405736 (Version 1)
Quarter: 2013Q3

REPORT INFORMATION
  Report Type: Spontaneous
  Country: US (occurrence: US)
  Receive Date: 20130717
  Receipt Date: 20130717
  Transmission Date: 20140515
  Serious: Yes (Hospitalization)
  Sender: FDA-Public Use
  Company Number: US-GLAXOSMITHKLINE-A0789271A

PATIENT
  Age: 48 Year
  Sex: Female

DRUGS (10)
  1. AVANDIA [Suspect]
     Indication: DIABETES MELLITUS
     Dosage: 4MG TWICE PER DAY
     Route: 048
     Dates: start: 20070131, end: 20090821
  2. AVANDAMET [Suspect]
     Indication: DIABETES MELLITUS
     Route: 048
     Dates: start: 20020101
  3. PERCOCET [Concomitant]
  4. GLIPIZIDE [Concomitant]
  5. METHOCARBAMOL [Concomitant]
  6. LOTREL [Concomitant]
  7. NEXIUM [Concomitant]
  8. CRESTOR [Concomitant]
  9. HYDROCHLOROTHIAZIDE [Concomitant]
  10. CYCLOBENZAPRINE [Concomitant]

REACTIONS (1)
  - Cerebrovascular accident [Not Recovered/Not Resolved]
